FAERS Safety Report 9439275 (Version 2)
Quarter: 2013Q4

REPORT INFORMATION
  Report Type: Report from Study
  Country: CN (occurrence: CN)
  Receive Date: 20130804
  Receipt Date: 20131023
  Transmission Date: 20140711
  Serious: Yes (Other)
  Sender: FDA-Public Use
  Company Number: CN-ROCHE-1256721

PATIENT
  Sex: Male
  Weight: 73 kg

DRUGS (2)
  1. AVASTIN [Suspect]
     Indication: COLON CANCER
     Route: 042
     Dates: start: 20120525
  2. AVASTIN [Suspect]
     Indication: METASTASES TO LIVER

REACTIONS (1)
  - Disease progression [Unknown]
